FAERS Safety Report 8520911-5 (Version None)
Quarter: 2012Q3

REPORT INFORMATION
  Report Type: 
  Country: None (occurrence: None)
  Receive Date: 20120719
  Receipt Date: 20120717
  Transmission Date: 20120928
  Serious: No
  Sender: FDA-Public Use
  Company Number: US-PFIZER INC-2012172645

PATIENT
  Sex: Male
  Weight: 90.703 kg

DRUGS (1)
  1. ADVIL [Suspect]
     Indication: SPINAL COLUMN INJURY
     Dosage: 200 MG, AS NEEDED
     Route: 048
     Dates: start: 20120714, end: 20120717

REACTIONS (1)
  - DRUG INEFFECTIVE [None]
